FAERS Safety Report 9144786 (Version 1)
Quarter: 2013Q1

REPORT INFORMATION
  Report Type: Spontaneous
  Country: GB (occurrence: GB)
  Receive Date: 20130306
  Receipt Date: 20130306
  Transmission Date: 20140127
  Serious: Yes (Other)
  Sender: FDA-Public Use
  Company Number: PHHY2008GB33652

PATIENT
  Age: 34 Year
  Sex: Male

DRUGS (1)
  1. CLOZARIL [Suspect]
     Indication: SCHIZOPHRENIA
     Dosage: UNK
     Dates: start: 20040910

REACTIONS (11)
  - Influenza like illness [Unknown]
  - Oropharyngeal pain [Recovered/Resolved]
  - Malaise [Unknown]
  - Vomiting [Unknown]
  - Weight decreased [Unknown]
  - White blood cell count decreased [Recovered/Resolved]
  - Neutrophil count decreased [Recovered/Resolved]
  - Thrombocytopenia [Unknown]
  - Nightmare [Unknown]
  - Dry mouth [Recovering/Resolving]
  - Neutrophil count increased [Unknown]
